FAERS Safety Report 8856859 (Version 1)
Quarter: 2012Q4

REPORT INFORMATION
  Report Type: Spontaneous
  Country: US (occurrence: None)
  Receive Date: 20121023
  Receipt Date: 20121023
  Transmission Date: 20130627
  Serious: Yes (Life-Threatening, Hospitalization)
  Sender: FDA-Public Use
  Company Number: None

PATIENT
  Sex: Female
  Weight: 65.77 kg

DRUGS (2)
  1. SERAQUIL [Suspect]
     Dosage: lowest .05mg  1 time  tongue swell
     Dates: start: 201209
  2. SEROQUIL XL [Suspect]
     Dosage: lowest .05mg 1 time daily loss of leg muscle
     Dates: start: 201209

REACTIONS (5)
  - Fall [None]
  - Swollen tongue [None]
  - Drug interaction [None]
  - Alopecia [None]
  - Cardio-respiratory arrest [None]
